FAERS Safety Report 5181779-0 (Version None)
Quarter: 2006Q4

REPORT INFORMATION
  Report Type: 
  Country: None (occurrence: None)
  Receive Date: 20061220
  Receipt Date: 20061212
  Transmission Date: 20070319
  Serious: Yes (Hospitalization)
  Sender: FDA-Public Use
  Company Number: US-JNJFOC-20061001660

PATIENT
  Sex: Female

DRUGS (7)
  1. RAZADYNE [Suspect]
     Indication: AMNESIA
     Route: 048
  2. RAZADYNE ER [Suspect]
     Indication: AMNESIA
  3. ZANTAC [Concomitant]
     Route: 048
  4. SINGULAIR [Concomitant]
     Indication: ASTHMA
     Route: 048
  5. VALIUM [Concomitant]
     Route: 048
  6. LOSTATIN [Concomitant]
     Route: 048
  7. LISINOPRIL [Concomitant]
     Indication: HYPERTENSION
     Route: 048

REACTIONS (5)
  - ABDOMINAL DISTENSION [None]
  - ABDOMINAL PAIN [None]
  - NAUSEA [None]
  - RESTLESSNESS [None]
  - WEIGHT DECREASED [None]
